FAERS Safety Report 5754794-3 (Version None)
Quarter: 2008Q2

REPORT INFORMATION
  Report Type: 
  Country: None (occurrence: None)
  Receive Date: 20080527
  Receipt Date: 20080506
  Transmission Date: 20081010
  Serious: Yes (Hospitalization)
  Sender: FDA-Public Use
  Company Number: 2008AL003603

PATIENT
  Age: 70 Year
  Sex: Male
  Weight: 68.0396 kg

DRUGS (5)
  1. DIGOXIN [Suspect]
     Indication: CHRONIC OBSTRUCTIVE PULMONARY DISEASE
     Dosage: 0.125MG DAILY PO
     Route: 048
     Dates: start: 20080301
  2. ALBUTEROL [Concomitant]
  3. IMDUR [Concomitant]
  4. LASIX [Concomitant]
  5. AMIODERONE [Concomitant]

REACTIONS (4)
  - ANGINA PECTORIS [None]
  - DIZZINESS [None]
  - NAUSEA [None]
  - PHARMACEUTICAL PRODUCT COMPLAINT [None]
